FAERS Safety Report 7124612-X (Version None)
Quarter: 2010Q4

REPORT INFORMATION
  Report Type: 
  Country: None (occurrence: None)
  Receive Date: 20101129
  Receipt Date: 20101120
  Transmission Date: 20110411
  Serious: Yes (Death, Other)
  Sender: FDA-Public Use
  Company Number: US-CELGENEUS-163-21880-10112589

PATIENT
  Sex: Male

DRUGS (4)
  1. REVLIMID [Suspect]
     Indication: MULTIPLE MYELOMA
     Route: 048
     Dates: start: 20081031, end: 20090202
  2. DEXAMETHASONE [Concomitant]
     Indication: MULTIPLE MYELOMA
     Route: 065
     Dates: start: 20081101
  3. ZOMETA [Concomitant]
     Route: 065
  4. ANTIBIOTICS [Concomitant]
     Indication: ORAL INFECTION
     Route: 065
     Dates: start: 20090101

REACTIONS (2)
  - MULTIPLE MYELOMA [None]
  - ORAL INFECTION [None]
